FAERS Safety Report 26128938 (Version 2)
Quarter: 2025Q4

REPORT INFORMATION
  Report Type: Spontaneous
  Country: US (occurrence: None)
  Receive Date: 20251208
  Receipt Date: 20251216
  Transmission Date: 20260118
  Serious: Yes (Hospitalization)
  Sender: ENDO
  Company Number: US-ENDO USA, INC.-2025-002408

PATIENT
  Age: 51 Year
  Sex: Male

DRUGS (3)
  1. TESTOSTERONE [Suspect]
     Active Substance: TESTOSTERONE
     Indication: Hypogonadism
     Dosage: UNK UNKNOWN, TWICE WEEKLY
     Route: 065
  2. PRASTERONE [Suspect]
     Active Substance: PRASTERONE
     Indication: Hypogonadism
     Dosage: UNK UNKNOWN, UNKNOWN
     Route: 065
  3. PREGNENOLONE [Suspect]
     Active Substance: PREGNENOLONE
     Indication: Hypogonadism
     Dosage: UNK UNKNOWN, UNKNOWN
     Route: 065

REACTIONS (2)
  - Aortic thrombosis [Recovered/Resolved]
  - Sinus tachycardia [Recovered/Resolved]
